FAERS Safety Report 4354579-9 (Version None)
Quarter: 2004Q2

REPORT INFORMATION
  Report Type: 
  Country: None (occurrence: None)
  Receive Date: 20040506
  Receipt Date: 20040506
  Transmission Date: 20050107
  Serious: Yes (Other)
  Sender: FDA-Public Use
  Company Number: None

PATIENT
  Age: 66 Year
  Sex: Male
  Weight: 81.1939 kg

DRUGS (6)
  1. GEMCITABINE 100 MG/ML LILLY ONCOLOGY [Suspect]
     Indication: PANCREATIC CARCINOMA METASTATIC
     Dosage: 1000 MG /M2 DAY 1 AND 8 IV
     Route: 042
     Dates: start: 20040407, end: 20040428
  2. CISPLATIN [Suspect]
     Indication: PANCREATIC CARCINOMA METASTATIC
     Dosage: 20 MG/M2 DAY 1 AND 8 IV
     Route: 042
     Dates: start: 20040407, end: 20040428
  3. COMPAZINE [Concomitant]
  4. ATIVAN [Concomitant]
  5. KYTRIL [Concomitant]
  6. DECADRON [Concomitant]

REACTIONS (1)
  - NEUTROPENIA [None]
